FAERS Safety Report 5705734-4 (Version None)
Quarter: 2008Q2

REPORT INFORMATION
  Report Type: 
  Country: None (occurrence: None)
  Receive Date: 20080415
  Receipt Date: 20080404
  Transmission Date: 20081010
  Serious: Yes (Hospitalization)
  Sender: FDA-Public Use
  Company Number: B0515634A

PATIENT
  Age: 76 Year
  Sex: Female

DRUGS (6)
  1. AUGMENTIN '125' [Suspect]
     Indication: SIGMOIDITIS
     Dates: start: 20070720, end: 20070809
  2. FLAGYL [Suspect]
     Indication: SIGMOIDITIS
     Route: 048
     Dates: start: 20070720, end: 20070809
  3. ZOCOR [Concomitant]
     Route: 048
  4. ALDACTONE [Concomitant]
     Route: 048
  5. NEURONTIN [Concomitant]
     Route: 048
     Dates: start: 20070301
  6. ADALAT [Concomitant]
     Indication: DRUG USE FOR UNKNOWN INDICATION
     Route: 048

REACTIONS (5)
  - ATAXIA [None]
  - DYSARTHRIA [None]
  - GAIT DISTURBANCE [None]
  - PSYCHOMOTOR RETARDATION [None]
  - PSYCHOMOTOR SKILLS IMPAIRED [None]
